FAERS Safety Report 18920561 (Version 2)
Quarter: 2022Q3

REPORT INFORMATION
  Report Type: Spontaneous
  Country: US (occurrence: US)
  Receive Date: 20210222
  Receipt Date: 20220807
  Transmission Date: 20221026
  Serious: Yes (Hospitalization, Other)
  Sender: FDA-Public Use
  Company Number: US-APOTEX-2021AP002802

PATIENT
  Age: 73 Year
  Sex: Male

DRUGS (15)
  1. DICLOFENAC [Interacting]
     Active Substance: DICLOFENAC
     Indication: Arthralgia
     Dosage: UNK
     Route: 065
  2. CIMETIDINE [Interacting]
     Active Substance: CIMETIDINE
     Indication: Arthralgia
     Dosage: UNK
     Route: 065
  3. PIROXICAM [Interacting]
     Active Substance: PIROXICAM
     Indication: Arthralgia
     Dosage: UNK
     Route: 065
  4. INDOMETHACIN [Interacting]
     Active Substance: INDOMETHACIN
     Indication: Arthralgia
     Dosage: UNK
     Route: 065
  5. TETRACYCLINE [Interacting]
     Active Substance: TETRACYCLINE
     Indication: Product used for unknown indication
     Dosage: UNK
     Route: 065
  6. LEVAMISOLE [Interacting]
     Active Substance: LEVAMISOLE
     Indication: Product used for unknown indication
     Dosage: UNK
     Route: 065
  7. BERBERINE [Interacting]
     Active Substance: BERBERINE
     Indication: Product used for unknown indication
     Dosage: UNK
     Route: 065
  8. METHOXSALEN [Interacting]
     Active Substance: METHOXSALEN
     Indication: Product used for unknown indication
     Dosage: UNK
     Route: 065
  9. BOLDINE [Interacting]
     Active Substance: BOLDINE
     Indication: Product used for unknown indication
     Dosage: UNK
     Route: 065
  10. PSEUDOEPHEDRINE [Interacting]
     Active Substance: PSEUDOEPHEDRINE
     Indication: Product used for unknown indication
     Dosage: UNK
     Route: 065
  11. EPHEDRINE [Interacting]
     Active Substance: EPHEDRINE
     Indication: Product used for unknown indication
     Dosage: UNK
     Route: 065
  12. ATROPINE [Interacting]
     Active Substance: ATROPINE
     Indication: Product used for unknown indication
     Dosage: UNK
     Route: 065
  13. CHLORTETRACYCLINE [Interacting]
     Active Substance: CHLORTETRACYCLINE
     Indication: Product used for unknown indication
     Dosage: UNK
     Route: 065
  14. LANSOPRAZOLE [Interacting]
     Active Substance: LANSOPRAZOLE
     Indication: Product used for unknown indication
     Dosage: UNK
     Route: 065
  15. PALMATINE [Interacting]
     Active Substance: PALMATINE
     Indication: Product used for unknown indication
     Dosage: UNK
     Route: 065

REACTIONS (4)
  - Drug interaction [Recovered/Resolved]
  - Adulterated product [Unknown]
  - Duodenal ulcer [Recovered/Resolved]
  - Gastrointestinal haemorrhage [Recovered/Resolved]
